FAERS Safety Report 4937582-7 (Version None)
Quarter: 2006Q1

REPORT INFORMATION
  Report Type: 
  Country: None (occurrence: None)
  Receive Date: 20060309
  Receipt Date: 20051017
  Transmission Date: 20060701
  Serious: Yes (Hospitalization, Disabling)
  Sender: FDA-Public Use
  Company Number: US-MERCK-0510USA07790

PATIENT
  Age: 56 Year
  Sex: Male
  Weight: 123 kg

DRUGS (11)
  1. VIOXX [Suspect]
     Indication: ARTHRALGIA
     Route: 048
     Dates: start: 20020801, end: 20030901
  2. VIOXX [Suspect]
     Route: 048
     Dates: start: 20031001, end: 20040801
  3. VIOXX [Suspect]
     Route: 048
     Dates: start: 20020801, end: 20030901
  4. VIOXX [Suspect]
     Route: 048
     Dates: start: 20031001, end: 20040801
  5. GLUCOPHAGE [Concomitant]
     Route: 065
  6. SYNTHROID [Concomitant]
     Route: 065
  7. PROZAC [Concomitant]
     Route: 065
  8. NORVASC [Concomitant]
     Route: 065
  9. VALIUM [Concomitant]
     Route: 065
  10. HYDROCHLOROTHIAZIDE [Concomitant]
     Route: 065
  11. PHENERGAN [Concomitant]
     Route: 065

REACTIONS (16)
  - ANGINA UNSTABLE [None]
  - CEREBELLAR INFARCTION [None]
  - CEREBROVASCULAR ACCIDENT [None]
  - CHEST PAIN [None]
  - CONTUSION [None]
  - DIZZINESS [None]
  - EXCORIATION [None]
  - EXOSTOSIS [None]
  - FALL [None]
  - GOITRE [None]
  - GOUT [None]
  - ISCHAEMIA [None]
  - MYOCARDIAL INFARCTION [None]
  - NEPHROLITHIASIS [None]
  - TREMOR [None]
  - WRONG TECHNIQUE IN DRUG USAGE PROCESS [None]
